FAERS Safety Report 7321745-X (Version None)
Quarter: 2011Q1

REPORT INFORMATION
  Report Type: 
  Country: None (occurrence: None)
  Receive Date: 20110228
  Receipt Date: 20090922
  Transmission Date: 20110831
  Serious: No
  Sender: FDA-Public Use
  Company Number: A0847064A

PATIENT
  Age: 76 Year
  Sex: Female

DRUGS (8)
  1. ACYCLOVIR [Concomitant]
     Dosage: 400MG THREE TIMES PER DAY
     Dates: end: 20090301
  2. MELPHALAN HYDROCHLORIDE [Suspect]
     Indication: MULTIPLE MYELOMA
     Route: 065
     Dates: start: 20090521
  3. PREDNISONE [Suspect]
     Indication: MULTIPLE MYELOMA
     Route: 048
     Dates: start: 20090521
  4. COLCHICINE [Concomitant]
  5. METFORMIN [Concomitant]
     Dosage: 500MG TWICE PER DAY
  6. REVLIMID [Suspect]
     Indication: MULTIPLE MYELOMA
     Route: 048
     Dates: start: 20090606
  7. GLIPIZIDE [Concomitant]
     Dosage: 2.5MG PER DAY
  8. ASA [Concomitant]
     Dosage: 325MG PER DAY

REACTIONS (5)
  - HAEMOGLOBIN DECREASED [None]
  - HAEMATOCRIT DECREASED [None]
  - WHITE BLOOD CELL COUNT DECREASED [None]
  - PLATELET COUNT DECREASED [None]
  - ASTHENIA [None]
